FAERS Safety Report 16977947 (Version 1)
Quarter: 2019Q4

REPORT INFORMATION
  Report Type: Spontaneous
  Country: US (occurrence: US)
  Receive Date: 20191031
  Receipt Date: 20191031
  Transmission Date: 20200122
  Serious: Yes (Hospitalization, Other)
  Sender: FDA-Public Use
  Company Number: US-AUROBINDO-AUR-APL-2019-069856

PATIENT
  Age: 58 Year
  Sex: Female

DRUGS (4)
  1. GABAPENTIN. [Concomitant]
     Active Substance: GABAPENTIN
     Indication: PRODUCT USED FOR UNKNOWN INDICATION
     Dosage: UNK
     Route: 065
  2. CYCLOBENZAPRINE. [Suspect]
     Active Substance: CYCLOBENZAPRINE
     Indication: PAIN
     Dosage: UNK
     Route: 065
  3. SUBOXONE [Suspect]
     Active Substance: BUPRENORPHINE HYDROCHLORIDE\NALOXONE HYDROCHLORIDE
     Indication: PAIN
     Dosage: UNK
     Route: 065
  4. DULOXETINE. [Suspect]
     Active Substance: DULOXETINE
     Indication: PAIN
     Dosage: UNK
     Route: 065

REACTIONS (10)
  - Clonus [Unknown]
  - Mydriasis [Unknown]
  - Muscle rigidity [Unknown]
  - Serotonin syndrome [Unknown]
  - Agitation [Unknown]
  - Confusional state [Recovered/Resolved]
  - Drug interaction [Unknown]
  - Tachycardia [Unknown]
  - Hyperhidrosis [Unknown]
  - Hyperreflexia [Recovered/Resolved]
